FAERS Safety Report 4705468-9 (Version None)
Quarter: 2005Q2

REPORT INFORMATION
  Report Type: 
  Country: None (occurrence: None)
  Receive Date: 20050630
  Receipt Date: 20050630
  Transmission Date: 20051028
  Serious: Yes (Hospitalization)
  Sender: FDA-Public Use
  Company Number: None

PATIENT
  Age: 58 Year
  Sex: Male
  Weight: 119.5 kg

DRUGS (7)
  1. AUGMENTIN '125' [Suspect]
     Indication: CELLULITIS
     Dosage: 250MG  P.O.  BID
     Route: 048
     Dates: start: 20050521, end: 20050523
  2. FOLIC ACID [Concomitant]
  3. FUROSEMIDE [Concomitant]
  4. MULTI-VITAMIN [Concomitant]
  5. POTASSIUM CHLORIDE [Concomitant]
  6. HYDROCODONE 5/ACETAMINOPHEN [Concomitant]
  7. THIAMINE HCL [Concomitant]

REACTIONS (1)
  - RASH [None]
